FAERS Safety Report 7197610-8 (Version None)
Quarter: 2010Q4

REPORT INFORMATION
  Report Type: 
  Country: None (occurrence: None)
  Receive Date: 20101227
  Receipt Date: 20101220
  Transmission Date: 20110411
  Serious: Yes (Hospitalization)
  Sender: FDA-Public Use
  Company Number: FR-SANOFI-AVENTIS-2009SA010884

PATIENT
  Age: 61 Year
  Sex: Female

DRUGS (5)
  1. ELOXATIN [Suspect]
     Indication: BREAST CANCER
     Route: 042
     Dates: start: 20090930, end: 20091014
  2. GEMZAR [Suspect]
     Indication: BREAST CANCER
     Route: 042
     Dates: start: 20090930, end: 20090930
  3. KYTRIL [Suspect]
     Indication: PREMEDICATION
     Dosage: DOSE:3 MILLIGRAM(S)/MILLILITRE
     Route: 042
     Dates: start: 20090930, end: 20091014
  4. POLARAMINE [Suspect]
     Indication: PREMEDICATION
     Route: 042
     Dates: start: 20091014, end: 20091014
  5. METHYLPREDNISOLONE [Suspect]
     Indication: PREMEDICATION
     Route: 042
     Dates: start: 20091014, end: 20091014

REACTIONS (6)
  - DYSPHAGIA [None]
  - DYSPNOEA [None]
  - HYPERTENSION [None]
  - JOINT CONTRACTURE [None]
  - MUSCLE SPASMS [None]
  - PSEUDOPARALYSIS [None]
